FAERS Safety Report 9094776 (Version 1)
Quarter: 2013Q1

REPORT INFORMATION
  Report Type: Spontaneous
  Country: US (occurrence: US)
  Receive Date: 20130220
  Receipt Date: 20130220
  Transmission Date: 20140127
  Serious: No
  Sender: FDA-Public Use
  Company Number: US-BIOGENIDEC-2013BI014034

PATIENT
  Sex: Female
  Weight: 105 kg

DRUGS (3)
  1. TYSABRI [Suspect]
     Indication: MULTIPLE SCLEROSIS
     Route: 042
     Dates: start: 20100303
  2. METADATE CD [Concomitant]
     Route: 048
     Dates: start: 20111024
  3. BACLOFEN [Concomitant]
     Route: 048
     Dates: start: 20110228

REACTIONS (1)
  - Urinary incontinence [Unknown]
